FAERS Safety Report 8539656 (Version 2)
Quarter: 2013Q1

REPORT INFORMATION
  Report Type: Spontaneous
  Country: US (occurrence: US)
  Receive Date: 20120502
  Receipt Date: 20130110
  Transmission Date: 20140127
  Serious: Yes (Hospitalization)
  Sender: FDA-Public Use
  Company Number: US-AMGEN-USASP2012025855

PATIENT
  Age: 70 Year
  Sex: Female

DRUGS (1)
  1. ENBREL [Suspect]
     Indication: RHEUMATOID ARTHRITIS
     Dosage: 50 MG, QWK
     Dates: start: 20110801

REACTIONS (6)
  - Fall [Not Recovered/Not Resolved]
  - Hip fracture [Not Recovered/Not Resolved]
  - Respiratory tract congestion [Not Recovered/Not Resolved]
  - Pain [Not Recovered/Not Resolved]
  - Mobility decreased [Not Recovered/Not Resolved]
  - Gastroenteritis viral [Not Recovered/Not Resolved]
